FAERS Safety Report 4539957-7 (Version None)
Quarter: 2004Q4

REPORT INFORMATION
  Report Type: 
  Country: None (occurrence: None)
  Receive Date: 20041223
  Receipt Date: 20041214
  Transmission Date: 20050328
  Serious: Yes (Hospitalization, Other)
  Sender: FDA-Public Use
  Company Number: 2004111569

PATIENT
  Sex: Female
  Weight: 113.3993 kg

DRUGS (4)
  1. NEURONTIN [Suspect]
     Indication: ARTHRALGIA
     Dosage: 400 MG (100 MG, 4 IN 1 D), ORAL
     Route: 048
     Dates: start: 20030101, end: 20030701
  2. HYTRIN [Concomitant]
  3. POTASSIUM (POTASSIUM) [Concomitant]
  4. SYNTHROID [Concomitant]

REACTIONS (7)
  - ABASIA [None]
  - AMNESIA [None]
  - JOINT DISLOCATION [None]
  - PAIN [None]
  - POST PROCEDURAL COMPLICATION [None]
  - SOMNOLENCE [None]
  - STUPOR [None]
